FAERS Safety Report 9579620 (Version 2)
Quarter: 2013Q4

REPORT INFORMATION
  Report Type: Spontaneous
  Country: US (occurrence: US)
  Receive Date: 20131001
  Receipt Date: 20131001
  Transmission Date: 20140711
  Serious: No
  Sender: FDA-Public Use
  Company Number: US-AMGEN-USASP2013015019

PATIENT
  Age: 49 Year
  Sex: Female
  Weight: 83.9 kg

DRUGS (7)
  1. ENBREL [Suspect]
     Indication: RHEUMATOID ARTHRITIS
     Dosage: 50 MG, QWK
     Route: 058
  2. METHOTREXATE [Concomitant]
     Dosage: 2.5 MG, UNK
  3. FOLIC ACID [Concomitant]
     Dosage: UNK
  4. PREDNISONE [Concomitant]
     Dosage: 5 MG, UNK
  5. IBUPROFEN [Concomitant]
     Dosage: 200 MG, UNK
  6. HUMIRA [Concomitant]
     Indication: RHEUMATOID ARTHRITIS
     Dosage: 40 MG / 0.8, UNK
  7. BIOTIN [Concomitant]
     Dosage: 5000 UNK, PRN

REACTIONS (2)
  - Chest X-ray abnormal [Unknown]
  - Drug ineffective [Unknown]
